FAERS Safety Report 4324150-3 (Version None)
Quarter: 2004Q1

REPORT INFORMATION
  Report Type: 
  Country: None (occurrence: None)
  Receive Date: 20040326
  Receipt Date: 20031229
  Transmission Date: 20041129
  Serious: No
  Sender: FDA-Public Use
  Company Number: US-GLAXOSMITHKLINE-A0490911A

PATIENT
  Age: 50 Year
  Sex: Male

DRUGS (1)
  1. ADVAIR DISKUS 100/50 [Suspect]
     Dosage: 1PUFF SINGLE DOSE
     Route: 055
     Dates: start: 20031228, end: 20031228

REACTIONS (1)
  - DIZZINESS [None]
